FAERS Safety Report 5690935-4 (Version None)
Quarter: 2008Q2

REPORT INFORMATION
  Report Type: 
  Country: None (occurrence: None)
  Receive Date: 20080401
  Receipt Date: 20080324
  Transmission Date: 20081010
  Serious: Yes (Hospitalization)
  Sender: FDA-Public Use
  Company Number: US-SANOFI-SYNTHELABO-A03200704240

PATIENT
  Age: 40 Year
  Sex: Male

DRUGS (5)
  1. AMBIEN [Suspect]
     Indication: INSOMNIA
     Dosage: UNK
     Route: 048
     Dates: start: 20060101, end: 20080119
  2. FLUOXETINE [Suspect]
     Indication: DRUG USE FOR UNKNOWN INDICATION
     Dosage: UNK
     Route: 048
     Dates: start: 20060113
  3. TRAZODONE HCL [Suspect]
     Indication: ANXIETY
     Dosage: UNK
     Route: 048
     Dates: start: 20060101
  4. TRAZODONE HCL [Suspect]
     Indication: DEPRESSION
     Dosage: UNK
     Route: 048
     Dates: start: 20060101
  5. PAXIL [Suspect]
     Indication: DEPRESSION
     Dosage: UNK
     Route: 048
     Dates: start: 20040101, end: 20060101

REACTIONS (3)
  - BIPOLAR DISORDER [None]
  - DRUG INEFFECTIVE [None]
  - HOMICIDE [None]
